FAERS Safety Report 17402250 (Version 1)
Quarter: 2020Q1

REPORT INFORMATION
  Report Type: Spontaneous
  Country: US (occurrence: US)
  Receive Date: 20200210
  Receipt Date: 20200210
  Transmission Date: 20200409
  Serious: Yes (Disabling)
  Sender: FDA-Public Use
  Company Number: None

PATIENT
  Age: 54 Year
  Sex: Female
  Weight: 56.25 kg

DRUGS (7)
  1. VITAMIN D3 [Concomitant]
     Active Substance: CHOLECALCIFEROL
  2. ZINC. [Concomitant]
     Active Substance: ZINC
  3. TEMAZEPAM PRN FOR INSOMNIA [Concomitant]
  4. MAGNESIUM [Concomitant]
     Active Substance: MAGNESIUM
  5. JEUVEAU [Suspect]
     Active Substance: PRABOTULINUMTOXINA-XVFS
     Indication: SKIN WRINKLING
     Dates: start: 20200131, end: 20200131
  6. MULT-VITAMIN [Concomitant]
  7. CALCIUM [Concomitant]
     Active Substance: CALCIUM

REACTIONS (10)
  - Face oedema [None]
  - Lacrimation increased [None]
  - Dizziness [None]
  - Eye pain [None]
  - Vision blurred [None]
  - Palpitations [None]
  - Headache [None]
  - Presyncope [None]
  - Hypoaesthesia oral [None]
  - Facial paresis [None]

NARRATIVE: CASE EVENT DATE: 20200131
